FAERS Safety Report 21314376 (Version 1)
Quarter: 2022Q3

REPORT INFORMATION
  Report Type: Spontaneous
  Country: US (occurrence: None)
  Receive Date: 20220909
  Receipt Date: 20220909
  Transmission Date: 20221026
  Serious: No
  Sender: FDA-Public Use
  Company Number: US-ARIS GLOBAL-202110-1817

PATIENT
  Age: 81 Year
  Sex: Male

DRUGS (19)
  1. OXERVATE [Suspect]
     Active Substance: CENEGERMIN-BKBJ
     Indication: Keratitis
     Route: 047
     Dates: start: 20210929
  2. ERYTHROMYCIN [Concomitant]
     Active Substance: ERYTHROMYCIN
  3. SIMVASTATIN [Concomitant]
     Active Substance: SIMVASTATIN
  4. OFLOXACIN [Concomitant]
     Active Substance: OFLOXACIN
  5. METOPROLOL SUCCINATE [Concomitant]
     Active Substance: METOPROLOL SUCCINATE
  6. METFORMIN [Concomitant]
     Active Substance: METFORMIN HYDROCHLORIDE
  7. LEVOTHYROXINE [Concomitant]
     Active Substance: LEVOTHYROXINE
  8. PREVACID [Concomitant]
     Active Substance: LANSOPRAZOLE
  9. DEXAMETHASONE [Concomitant]
     Active Substance: DEXAMETHASONE
  10. BENAZEPRIL HYDROCHLORIDE [Concomitant]
     Active Substance: BENAZEPRIL HYDROCHLORIDE
  11. ASPIRIN [Concomitant]
     Active Substance: ASPIRIN
  12. VITAMIN C [Concomitant]
     Active Substance: ASCORBIC ACID
  13. VALSARTAN [Concomitant]
     Active Substance: VALSARTAN
  14. AMLODIPINE BESYLATE [Concomitant]
     Active Substance: AMLODIPINE BESYLATE
  15. VANCOMYCIN [Concomitant]
     Active Substance: VANCOMYCIN
     Route: 061
     Dates: start: 20211006, end: 20211020
  16. SERUM TEARS [Concomitant]
     Indication: Ulcerative keratitis
     Route: 061
     Dates: start: 20211008, end: 20211020
  17. DOXYCYCLINE [Concomitant]
     Active Substance: DOXYCYCLINE
     Indication: Ulcerative keratitis
     Route: 061
     Dates: start: 20210908
  18. VITAMIN C [Concomitant]
     Active Substance: ASCORBIC ACID
     Indication: Ulcerative keratitis
     Route: 061
     Dates: start: 20210908
  19. DECADRON [Concomitant]
     Active Substance: DEXAMETHASONE
     Route: 048
     Dates: start: 20210908

REACTIONS (3)
  - Lacrimation increased [Recovering/Resolving]
  - Ocular hyperaemia [Recovering/Resolving]
  - Corneal thinning [Recovered/Resolved with Sequelae]

NARRATIVE: CASE EVENT DATE: 20210925
